FAERS Safety Report 8399168-4 (Version None)
Quarter: 2012Q2

REPORT INFORMATION
  Report Type: 
  Country: None (occurrence: None)
  Receive Date: 20120531
  Receipt Date: 20120525
  Transmission Date: 20120825
  Serious: Yes (Hospitalization)
  Sender: FDA-Public Use
  Company Number: 2012SP001450

PATIENT
  Age: 57 Year
  Sex: Male

DRUGS (5)
  1. REBIF [Suspect]
     Indication: MULTIPLE SCLEROSIS
  2. LIPITOR [Concomitant]
     Indication: HYPERCHOLESTEROLAEMIA
  3. LATUDA [Suspect]
     Indication: BIPOLAR II DISORDER
     Route: 048
     Dates: start: 20111201
  4. GILENYA [Suspect]
     Indication: MULTIPLE SCLEROSIS
  5. CITALOPRAM [Concomitant]
     Indication: BIPOLAR II DISORDER

REACTIONS (7)
  - GLOBULINS DECREASED [None]
  - NEPHROPATHY [None]
  - PROTEINURIA [None]
  - BLOOD ALBUMIN DECREASED [None]
  - URINE PROTEIN/CREATININE RATIO INCREASED [None]
  - BLOOD CALCIUM DECREASED [None]
  - PROTEIN TOTAL DECREASED [None]
